FAERS Safety Report 24912252 (Version 7)
Quarter: 2025Q4

REPORT INFORMATION
  Report Type: Spontaneous
  Country: US (occurrence: US)
  Receive Date: 20250131
  Receipt Date: 20251120
  Transmission Date: 20260118
  Serious: Yes (Hospitalization)
  Sender: SANOFI AVENTIS
  Company Number: US-SA-2025SA030568

PATIENT
  Age: 50 Year
  Sex: Male

DRUGS (1)
  1. DUPIXENT [Suspect]
     Active Substance: DUPILUMAB
     Indication: Chronic obstructive pulmonary disease
     Dosage: 300 MG, QOW
     Route: 058
     Dates: start: 20250104

REACTIONS (16)
  - Chronic obstructive pulmonary disease [Recovering/Resolving]
  - Wheezing [Recovering/Resolving]
  - Dyspnoea [Not Recovered/Not Resolved]
  - Chest discomfort [Not Recovered/Not Resolved]
  - Heart rate increased [Not Recovered/Not Resolved]
  - Oxygen saturation decreased [Recovered/Resolved]
  - Secretion discharge [Not Recovered/Not Resolved]
  - Cough [Not Recovered/Not Resolved]
  - Dysphagia [Recovered/Resolved]
  - Sleep disorder due to a general medical condition [Recovered/Resolved]
  - Headache [Not Recovered/Not Resolved]
  - Cardiac ablation [Recovering/Resolving]
  - Chronic obstructive pulmonary disease [Recovered/Resolved]
  - Cough [Recovered/Resolved]
  - Secretion discharge [Recovered/Resolved]
  - Arthralgia [Not Recovered/Not Resolved]

NARRATIVE: CASE EVENT DATE: 20250101
